FAERS Safety Report 8502902 (Version 2)
Quarter: 2013Q1

REPORT INFORMATION
  Report Type: Report from Study
  Country: US (occurrence: US)
  Receive Date: 20120411
  Receipt Date: 20130207
  Transmission Date: 20140127
  Serious: Yes (Other)
  Sender: FDA-Public Use
  Company Number: US-BIOGENIDEC-2012BI011623

PATIENT
  Age: 67 Year
  Sex: Female
  Weight: 111 kg

DRUGS (9)
  1. TYSABRI [Suspect]
     Indication: MULTIPLE SCLEROSIS
     Route: 042
     Dates: start: 20081006, end: 20091026
  2. ACTONEL [Concomitant]
  3. HYDROCHLOROTHIAZIDE [Concomitant]
  4. ENALAPRIL [Concomitant]
  5. FAMOTIDINE [Concomitant]
  6. OXYBUTYNIN ER [Concomitant]
  7. LYRICA [Concomitant]
  8. PRAMIPEXOLE [Concomitant]
  9. STEROIDS [Concomitant]
     Indication: MULTIPLE SCLEROSIS

REACTIONS (1)
  - Papillary thyroid cancer [Not Recovered/Not Resolved]
